FAERS Safety Report 20549151 (Version 2)
Quarter: 2022Q3

REPORT INFORMATION
  Report Type: Report from Study
  Country: CN (occurrence: CN)
  Receive Date: 20220303
  Receipt Date: 20220709
  Transmission Date: 20221027
  Serious: Yes (Disabling)
  Sender: FDA-Public Use
  Company Number: CN-BRISTOL-MYERS SQUIBB COMPANY-BMS-2022-026714

PATIENT
  Age: 68 Year
  Sex: Female

DRUGS (1)
  1. NIVOLUMAB [Suspect]
     Active Substance: NIVOLUMAB
     Indication: Gastric cancer
     Dosage: 100 MILLIGRAM, Q3WK
     Route: 041
     Dates: start: 20210517, end: 202111

REACTIONS (10)
  - Oedema peripheral [Unknown]
  - Hypoglycaemia [Recovering/Resolving]
  - Dizziness [Recovering/Resolving]
  - Nausea [Recovering/Resolving]
  - Oedema [Recovering/Resolving]
  - Nasopharyngitis [Unknown]
  - Cough [Unknown]
  - Vomiting [Unknown]
  - Asthenia [Unknown]
  - Off label use [Unknown]

NARRATIVE: CASE EVENT DATE: 20211001
